FAERS Safety Report 17344532 (Version 4)
Quarter: 2020Q1

REPORT INFORMATION
  Report Type: Spontaneous
  Country: DE (occurrence: DE)
  Receive Date: 20200129
  Receipt Date: 20200319
  Transmission Date: 20200409
  Serious: Yes (Other)
  Sender: FDA-Public Use
  Company Number: DE-ALLERGAN-2003296US

PATIENT
  Sex: Female

DRUGS (4)
  1. ASENAPINE MALEATE - BP [Suspect]
     Active Substance: ASENAPINE MALEATE
     Indication: MANIA
     Dosage: 10 MG IN THE MORNING AND 10 MG IN THE AFTERNOON/EVENING
     Route: 048
  2. NOVALGIN (METAMIZOLE SODIUM) [Suspect]
     Active Substance: METAMIZOLE SODIUM
     Indication: BACK PAIN
     Route: 065
  3. ESCITALOPRAM [Concomitant]
     Active Substance: ESCITALOPRAM OXALATE
     Indication: DEPRESSION
     Dosage: 5 MG, UNKNOWN
  4. QUILONUM [Concomitant]
     Active Substance: LITHIUM
     Indication: PRODUCT USED FOR UNKNOWN INDICATION
     Dosage: 2 DF, 2X 50MG
     Route: 065

REACTIONS (4)
  - Depression [Unknown]
  - Anaphylactic shock [Recovered/Resolved]
  - Influenza [Unknown]
  - Back pain [Unknown]
